FAERS Safety Report 4633445-5 (Version None)
Quarter: 2005Q2

REPORT INFORMATION
  Report Type: 
  Country: None (occurrence: None)
  Receive Date: 20050412
  Receipt Date: 20050330
  Transmission Date: 20051028
  Serious: Yes (Other)
  Sender: FDA-Public Use
  Company Number: HQWYE650404APR05

PATIENT

DRUGS (1)
  1. EFFEXOR [Suspect]
     Dosage: UNSPECIFIED DOSE AND FREQUENCY; ORAL
     Route: 048

REACTIONS (3)
  - AGGRESSION [None]
  - DRUG WITHDRAWAL SYNDROME [None]
  - SUICIDE ATTEMPT [None]
